FAERS Safety Report 7009935-7 (Version None)
Quarter: 2010Q3

REPORT INFORMATION
  Report Type: 
  Country: None (occurrence: None)
  Receive Date: 20100923
  Receipt Date: 20100915
  Transmission Date: 20110219
  Serious: No
  Sender: FDA-Public Use
  Company Number: US-B.I. PHARMACEUTICALS,INC./RIDGEFIELD-2010-BP-10563BP

PATIENT
  Sex: Male

DRUGS (3)
  1. SPIRIVA [Suspect]
     Indication: DYSPNOEA
     Dosage: 18 MCG
     Route: 055
     Dates: start: 20100601
  2. MEDICATION NOT OTHERWISE SPECIFIED [Concomitant]
     Indication: CARDIAC DISORDER
  3. MEDICATION NOT OTHERWISE SPECIFIED [Concomitant]
     Indication: FLUID RETENTION

REACTIONS (1)
  - DYSPNOEA [None]
